FAERS Safety Report 5769027-1 (Version None)
Quarter: 2008Q2

REPORT INFORMATION
  Report Type: 
  Country: None (occurrence: None)
  Receive Date: 20080612
  Receipt Date: 20080317
  Transmission Date: 20081010
  Serious: No
  Sender: FDA-Public Use
  Company Number: US-ABBOTT-08P-163-0443364-00

PATIENT
  Sex: Female
  Weight: 72.186 kg

DRUGS (7)
  1. HUMIRA [Suspect]
     Indication: CROHN'S DISEASE
     Route: 058
     Dates: start: 20080219, end: 20080219
  2. HUMIRA [Suspect]
     Route: 058
     Dates: start: 20080304, end: 20080304
  3. HUMIRA [Suspect]
     Route: 058
     Dates: start: 20080318
  4. LEVOTHYROXINE SODIUM [Concomitant]
     Indication: THYROIDECTOMY
  5. MESALAMINE [Concomitant]
     Indication: CROHN'S DISEASE
     Dosage: 400 MG 6 TABLETS (UNIT DOSE)
  6. ESCITALOPRAM OXALATE [Concomitant]
     Indication: DRUG USE FOR UNKNOWN INDICATION
  7. COLESTYRAMINE [Concomitant]
     Indication: CROHN'S DISEASE

REACTIONS (2)
  - TOOTH INFECTION [None]
  - TOOTHACHE [None]
